FAERS Safety Report 13412538 (Version 1)
Quarter: 2017Q2

REPORT INFORMATION
  Report Type: Spontaneous
  Country: US (occurrence: US)
  Receive Date: 20170406
  Receipt Date: 20170406
  Transmission Date: 20170830
  Serious: Yes (Other)
  Sender: FDA-Public Use
  Company Number: None

PATIENT
  Age: 48 Year
  Sex: Female
  Weight: 75.15 kg

DRUGS (1)
  1. LEVAQUIN [Suspect]
     Active Substance: LEVOFLOXACIN
     Indication: DIVERTICULUM INTESTINAL
     Route: 048
     Dates: start: 20170110, end: 20170120

REACTIONS (2)
  - Anxiety [None]
  - Hallucinations, mixed [None]

NARRATIVE: CASE EVENT DATE: 20170120
